FAERS Safety Report 19187510 (Version 1)
Quarter: 2021Q2

REPORT INFORMATION
  Report Type: Spontaneous
  Country: US (occurrence: US)
  Receive Date: 20210427
  Receipt Date: 20210427
  Transmission Date: 20210717
  Serious: Yes (Hospitalization)
  Sender: FDA-Public Use
  Company Number: US-PFIZER INC-2021418276

PATIENT
  Age: 30 Year
  Sex: Female
  Weight: 50.8 kg

DRUGS (1)
  1. HYDROXYZINE PAMOATE. [Suspect]
     Active Substance: HYDROXYZINE PAMOATE
     Indication: TREMOR

REACTIONS (4)
  - Anxiety [Unknown]
  - Off label use [Unknown]
  - Tremor [Unknown]
  - Feeling abnormal [Unknown]
